FAERS Safety Report 9345226 (Version 1)
Quarter: 2013Q2

REPORT INFORMATION
  Report Type: Spontaneous
  Country: US (occurrence: US)
  Receive Date: 20130612
  Receipt Date: 20130612
  Transmission Date: 20140414
  Serious: Yes (Death, Hospitalization)
  Sender: FDA-Public Use
  Company Number: US-MYLANLABS-2013S1012264

PATIENT
  Age: 64 Year
  Sex: Male

DRUGS (2)
  1. MORPHINE [Suspect]
     Indication: INTENTIONAL OVERDOSE
     Dosage: 1.2G
     Route: 048
  2. MORPHINE [Suspect]
     Indication: SUICIDE ATTEMPT
     Dosage: 1.2G
     Route: 048

REACTIONS (7)
  - Respiratory rate decreased [Unknown]
  - Somnolence [Unknown]
  - Myoclonic epilepsy [Unknown]
  - Cardiac arrest [Unknown]
  - Intentional overdose [Fatal]
  - Completed suicide [Fatal]
  - Renal failure acute [Unknown]
